FAERS Safety Report 8834106 (Version 1)
Quarter: 2012Q4

REPORT INFORMATION
  Report Type: 
  Country: DK (occurrence: DK)
  Receive Date: 20121010
  Receipt Date: 20121010
  Transmission Date: 20130627
  Serious: Yes (Hospitalization, Other)
  Sender: FDA-Public Use
  Company Number: DK-JNJFOC-20121003429

PATIENT
  Age: 35 Year
  Sex: Female

DRUGS (2)
  1. HYDROCORTISONE\MICONAZOLE [Suspect]
     Route: 061
  2. HYDROCORTISONE\MICONAZOLE [Suspect]
     Indication: LIMB DISCOMFORT
     Dosage: 20mg/g/10mg/g
     Route: 061

REACTIONS (1)
  - Convulsion [Unknown]
